FAERS Safety Report 9981264 (Version 1)
Quarter: 2014Q1

REPORT INFORMATION
  Report Type: Spontaneous
  Country: US (occurrence: None)
  Receive Date: 20140306
  Receipt Date: 20140306
  Transmission Date: 20141002
  Serious: Yes (Life-Threatening, Hospitalization)
  Sender: FDA-Public Use
  Company Number: None

PATIENT
  Age: 54 Year
  Sex: Male

DRUGS (1)
  1. OXYCODONE [Suspect]
     Indication: REVERSAL OF OPIATE ACTIVITY
     Route: 030

REACTIONS (5)
  - Snoring [None]
  - Foaming at mouth [None]
  - Miosis [None]
  - Loss of consciousness [None]
  - Feeling abnormal [None]
